FAERS Safety Report 6704960-5 (Version None)
Quarter: 2010Q2

REPORT INFORMATION
  Report Type: 
  Country: None (occurrence: None)
  Receive Date: 20100430
  Receipt Date: 20100423
  Transmission Date: 20101027
  Serious: Yes (Hospitalization, Disabling)
  Sender: FDA-Public Use
  Company Number: A0190400A

PATIENT
  Age: 17 Year
  Sex: Male

DRUGS (7)
  1. THORAZINE [Suspect]
     Route: 048
  2. STELAZINE [Suspect]
     Route: 048
     Dates: end: 19700101
  3. DEXEDRINE [Suspect]
     Route: 048
  4. ESKALITH [Concomitant]
     Route: 048
  5. PARNATE [Concomitant]
     Route: 048
     Dates: end: 19700101
  6. TAGAMET [Concomitant]
     Route: 048
  7. TEMARIL [Concomitant]
     Route: 048

REACTIONS (12)
  - COMA [None]
  - CONVULSION [None]
  - DECREASED APPETITE [None]
  - DEPRESSION [None]
  - DISABILITY [None]
  - DRUG ADMINISTRATION ERROR [None]
  - INJURY [None]
  - MENTAL DISORDER [None]
  - MUSCLE SPASMS [None]
  - MUSCULOSKELETAL STIFFNESS [None]
  - SOCIAL PROBLEM [None]
  - SOMNOLENCE [None]
